FAERS Safety Report 7227363-6 (Version None)
Quarter: 2011Q1

REPORT INFORMATION
  Report Type: 
  Country: None (occurrence: None)
  Receive Date: 20110114
  Receipt Date: 20110105
  Transmission Date: 20110831
  Serious: Yes (Other)
  Sender: FDA-Public Use
  Company Number: IE-MEDIMMUNE-MEDI-0012174

PATIENT
  Sex: Female

DRUGS (5)
  1. SYNAGIS [Suspect]
     Indication: SPINAL MUSCULAR ATROPHY
     Route: 030
     Dates: start: 20101214, end: 20101214
  2. SYNAGIS [Suspect]
     Route: 030
     Dates: start: 20101115, end: 20101115
  3. AUGMENTIN '125' [Concomitant]
  4. RANITIDINE HYDROCHLORIDE [Concomitant]
  5. LACTULOSE [Concomitant]

REACTIONS (1)
  - TERMINAL STATE [None]
